FAERS Safety Report 7570743-X (Version None)
Quarter: 2011Q2

REPORT INFORMATION
  Report Type: 
  Country: None (occurrence: None)
  Receive Date: 20110624
  Receipt Date: 20110614
  Transmission Date: 20111010
  Serious: Yes (Hospitalization, Other)
  Sender: FDA-Public Use
  Company Number: IT-ELI_LILLY_AND_COMPANY-IT201106000186

PATIENT
  Sex: Male

DRUGS (5)
  1. GEMZAR [Suspect]
     Indication: NON-HODGKIN'S LYMPHOMA
     Dosage: 1600 MG/M2/TOTAL, UNKNOWN
     Route: 042
  2. GEMZAR [Suspect]
     Dosage: 800 MG/M2, UNK
     Dates: start: 20110510, end: 20110513
  3. RITUXAN [Concomitant]
     Dosage: 500 MG/50ML, UNKNOWN
     Dates: start: 20110509, end: 20110509
  4. IFOSFAMIDE [Concomitant]
     Dosage: 1 G, UNKNOWN
     Route: 065
     Dates: start: 20110510, end: 20110513
  5. NAVELBINE [Concomitant]
     Dosage: 10 MG/ML, UNKNOWN
     Dates: start: 20110510, end: 20110510

REACTIONS (4)
  - ACUTE HAEMORRHAGIC CONJUNCTIVITIS [None]
  - PYREXIA [None]
  - PALMAR-PLANTAR ERYTHRODYSAESTHESIA SYNDROME [None]
  - OFF LABEL USE [None]
